FAERS Safety Report 11416356 (Version 1)
Quarter: 2015Q3

REPORT INFORMATION
  Report Type: Report from Study
  Country: US (occurrence: US)
  Receive Date: 20150825
  Receipt Date: 20150825
  Transmission Date: 20151125
  Serious: No
  Sender: FDA-Public Use
  Company Number: US-009507513-1508USA003111

PATIENT
  Sex: Female
  Weight: 178 kg

DRUGS (1)
  1. IMPLANON [Suspect]
     Active Substance: ETONOGESTREL
     Dosage: UNK
     Route: 059
     Dates: start: 20150310, end: 20150730

REACTIONS (2)
  - Menstruation irregular [Unknown]
  - Medical device removal [Unknown]

NARRATIVE: CASE EVENT DATE: 20150730
